FAERS Safety Report 13932800 (Version 1)
Quarter: 2020Q3

REPORT INFORMATION
  Report Type: Report from Study
  Country: GB (occurrence: GB)
  Receive Date: 20170904
  Receipt Date: 20170904
  Transmission Date: 20201105
  Serious: Yes (Hospitalization)
  Sender: FDA-Public Use
  Company Number: GB-ASTRAZENECA-2017SE75867

PATIENT
  Age: 19300 Day
  Sex: Male
  Weight: 84 kg

DRUGS (4)
  1. MEDI4736 [Suspect]
     Active Substance: DURVALUMAB
     Indication: METASTATIC RENAL CELL CARCINOMA
     Dosage: 1500 MG
     Route: 042
     Dates: start: 20170706
  2. SAVOLITINIB. [Suspect]
     Active Substance: SAVOLITINIB
     Indication: METASTATIC RENAL CELL CARCINOMA
     Dosage: 600 MG
     Route: 048
     Dates: start: 20170608
  3. PREDNISOLONE. [Concomitant]
     Active Substance: PREDNISOLONE
     Dates: start: 20170712
  4. SALBUTAMOL [Concomitant]
     Active Substance: ALBUTEROL
     Route: 055
     Dates: start: 20170606

REACTIONS (1)
  - Drug-induced liver injury [Recovered/Resolved]

NARRATIVE: CASE EVENT DATE: 20170720
